FAERS Safety Report 4822320-9 (Version None)
Quarter: 2005Q4

REPORT INFORMATION
  Report Type: 
  Country: None (occurrence: None)
  Receive Date: 20051103
  Receipt Date: 20051019
  Transmission Date: 20060501
  Serious: Yes (Other)
  Sender: FDA-Public Use
  Company Number: 0205043

PATIENT
  Age: 51 Year
  Sex: Female

DRUGS (5)
  1. DEPODUR [Suspect]
     Indication: POSTOPERATIVE ANALGESIA
     Dosage: 15 MG (ONCE, EPIDURAL)
     Route: 008
     Dates: start: 20050909, end: 20050909
  2. CARDIZEM [Suspect]
     Indication: ATRIAL FIBRILLATION
     Dosage: SEE IMAGE
     Route: 042
     Dates: start: 20050910, end: 20050910
  3. CARDIZEM [Suspect]
     Indication: ATRIAL FIBRILLATION
     Dosage: SEE IMAGE
     Route: 042
     Dates: start: 20050910, end: 20050911
  4. METOPROLOL (METOPROLOL) (INJECTION) [Suspect]
     Indication: ATRIAL FIBRILLATION
     Dosage: 5 MG (ONCE), INTRAVENOUS
     Route: 042
     Dates: start: 20050910, end: 20050910
  5. LOPRESSOR [Concomitant]

REACTIONS (8)
  - ATRIAL FIBRILLATION [None]
  - CARDIAC ARREST [None]
  - DISEASE RECURRENCE [None]
  - DIZZINESS [None]
  - HEART RATE INCREASED [None]
  - OXYGEN SATURATION DECREASED [None]
  - RESPIRATORY DEPRESSION [None]
  - SEDATION [None]
